FAERS Safety Report 15775230 (Version 1)
Quarter: 2018Q4

REPORT INFORMATION
  Report Type: Spontaneous
  Country: GB (occurrence: GB)
  Receive Date: 20181231
  Receipt Date: 20181231
  Transmission Date: 20190205
  Serious: Yes (Other)
  Sender: FDA-Public Use
  Company Number: GB-ACCORD-098684

PATIENT
  Age: 45 Year
  Sex: Male
  Weight: 97 kg

DRUGS (14)
  1. CLOBAZAM. [Concomitant]
     Active Substance: CLOBAZAM
     Dosage: ONE IN THE MORNING AND TWO AT NIGHT
     Dates: start: 20170209, end: 20180226
  2. KETOCONAZOLE. [Concomitant]
     Active Substance: KETOCONAZOLE
     Dates: start: 20170518
  3. FLUVASTATIN [Concomitant]
     Active Substance: FLUVASTATIN SODIUM
     Dates: start: 20170209
  4. AMLODIPINE [Suspect]
     Active Substance: AMLODIPINE BESYLATE
     Indication: PRODUCT USED FOR UNKNOWN INDICATION
  5. PHENYTOIN. [Concomitant]
     Active Substance: PHENYTOIN
     Dates: start: 20170209
  6. FULTIUM-D3 [Concomitant]
     Active Substance: CHOLECALCIFEROL
     Dates: start: 20180226
  7. INSULIN ASPART [Concomitant]
     Active Substance: INSULIN ASPART
     Dosage: AS PER DOSAGE FOR NORMAL ADJUSTMENT.
  8. GLUCAGON. [Concomitant]
     Active Substance: GLUCAGON
     Dosage: FOLLOW THE PACK INSTRUCTIONS
  9. LANTUS [Concomitant]
     Active Substance: INSULIN GLARGINE
     Dosage: IN THE MORNING AND EVENINGS
     Dates: start: 20170209
  10. QUININE [Concomitant]
     Active Substance: QUININE
     Dates: start: 20170209
  11. GLUCOSE/GLUCOSE MONOHYDRATE/GLUCOSE OXIDASE [Concomitant]
     Dosage: AS DIRECTED
  12. ZONISAMIDE. [Concomitant]
     Active Substance: ZONISAMIDE
     Dates: start: 20170209
  13. BENDROFLUMETHIAZIDE [Concomitant]
     Active Substance: BENDROFLUMETHIAZIDE
     Dosage: EACH MORNING.
     Dates: start: 20170209
  14. LISINOPRIL. [Concomitant]
     Active Substance: LISINOPRIL
     Dates: start: 20170209

REACTIONS (1)
  - Anaphylactic reaction [Unknown]
